FAERS Safety Report 13097316 (Version 1)
Quarter: 2017Q1

REPORT INFORMATION
  Report Type: Report from Study
  Country: ES (occurrence: ES)
  Receive Date: 20170109
  Receipt Date: 20170109
  Transmission Date: 20170428
  Serious: Yes (Hospitalization)
  Sender: FDA-Public Use
  Company Number: ES-HIKMA PHARMACEUTICALS CO. LTD-2016ES014135

PATIENT

DRUGS (2)
  1. IMUREL                             /00001501/ [Concomitant]
     Active Substance: AZATHIOPRINE SODIUM
     Dosage: UNK
     Dates: start: 201602
  2. INFLECTRA [Suspect]
     Active Substance: INFLIXIMAB-DYYB
     Indication: CROHN^S DISEASE
     Dosage: 10 MG/KG, CYCLIC EVERY 8 WEEKS
     Route: 042
     Dates: start: 20110419

REACTIONS (1)
  - Abscess intestinal [Recovering/Resolving]

NARRATIVE: CASE EVENT DATE: 20161212
